FAERS Safety Report 6752576-7 (Version None)
Quarter: 2010Q2

REPORT INFORMATION
  Report Type: 
  Country: None (occurrence: None)
  Receive Date: 20100602
  Receipt Date: 20100524
  Transmission Date: 20101027
  Serious: Yes (Other)
  Sender: FDA-Public Use
  Company Number: US-AMGEN-KDL414190

PATIENT
  Sex: Female

DRUGS (1)
  1. ENBREL [Suspect]
     Indication: PSORIATIC ARTHROPATHY
     Route: 058
     Dates: start: 20091201

REACTIONS (4)
  - CONVULSION [None]
  - DIZZINESS [None]
  - FIBROMYALGIA [None]
  - LOSS OF CONSCIOUSNESS [None]
